FAERS Safety Report 9949606 (Version 1)
Quarter: 2014Q1

REPORT INFORMATION
  Report Type: Report from Study
  Country: US (occurrence: US)
  Receive Date: 20140304
  Receipt Date: 20140304
  Transmission Date: 20141002
  Serious: No
  Sender: FDA-Public Use
  Company Number: US-ABBVIE-13P-163-1067571-00

PATIENT
  Sex: Female

DRUGS (12)
  1. HUMIRA [Suspect]
     Indication: CROHN^S DISEASE
     Dates: start: 2011
  2. COLACE [Concomitant]
     Indication: CROHN^S DISEASE
  3. POTASSIUM [Concomitant]
     Indication: MINERAL SUPPLEMENTATION
  4. CALCIUM [Concomitant]
     Indication: MINERAL SUPPLEMENTATION
  5. METAMUCIL [Concomitant]
     Indication: CROHN^S DISEASE
  6. MULTIVITAMINS [Concomitant]
     Indication: VITAMIN SUPPLEMENTATION
  7. IRON [Concomitant]
     Indication: VITAMIN SUPPLEMENTATION
  8. ASACOL [Concomitant]
     Indication: CROHN^S DISEASE
  9. PREDNISONE [Concomitant]
     Indication: CROHN^S DISEASE
  10. JUNEL FE [Concomitant]
     Indication: CONTRACEPTION
  11. ZOLOFT [Concomitant]
     Indication: DEPRESSION
  12. PRILOSEC [Concomitant]
     Indication: GASTROOESOPHAGEAL REFLUX DISEASE

REACTIONS (1)
  - Product taste abnormal [Not Recovered/Not Resolved]
